FAERS Safety Report 8127600-X (Version None)
Quarter: 2012Q1

REPORT INFORMATION
  Report Type: 
  Country: None (occurrence: None)
  Receive Date: 20120210
  Receipt Date: 20120203
  Transmission Date: 20120608
  Serious: Yes (Hospitalization, Other)
  Sender: FDA-Public Use
  Company Number: US-BAYER-2011-062625

PATIENT
  Age: 29 Year
  Sex: Female
  Weight: 100 kg

DRUGS (7)
  1. PROAIR HFA [Concomitant]
     Dosage: UNK
     Dates: start: 20090418
  2. YAZ [Suspect]
     Indication: ACNE
     Dosage: UNK
     Dates: start: 20071023, end: 20090721
  3. ORLISTAT [Concomitant]
     Indication: WEIGHT DECREASED
     Dosage: UNK
     Dates: start: 20090701, end: 20090721
  4. NICODERM [Concomitant]
     Indication: TOBACCO USER
  5. ATIVAN [Concomitant]
     Indication: TOBACCO USER
     Dosage: UNK UNK, PRN
  6. MULTI-VITAMIN [Concomitant]
  7. ALBUTEROL [Concomitant]
     Indication: ASTHMA
     Dosage: UNK UNK, PRN

REACTIONS (10)
  - ARTERIAL INJURY [None]
  - OEDEMA PERIPHERAL [None]
  - DYSPNOEA [None]
  - INJURY [None]
  - PULMONARY EMBOLISM [None]
  - EMOTIONAL DISTRESS [None]
  - DEEP VEIN THROMBOSIS [None]
  - CHEST PAIN [None]
  - PAIN [None]
  - PAIN IN EXTREMITY [None]
